FAERS Safety Report 8803895 (Version 4)
Quarter: 2013Q2

REPORT INFORMATION
  Report Type: Spontaneous
  Country: GB (occurrence: GB)
  Receive Date: 20120923
  Receipt Date: 20130528
  Transmission Date: 20140414
  Serious: Yes (Disabling)
  Sender: FDA-Public Use
  Company Number: GB-MYLANLABS-2012S1018844

PATIENT
  Age: 61 Year
  Sex: Female
  Weight: 97 kg

DRUGS (6)
  1. OMEPRAZOLE [Suspect]
     Indication: GASTROOESOPHAGEAL REFLUX DISEASE
     Route: 048
     Dates: end: 201202
  2. ADCAL D3 [Concomitant]
     Indication: PRODUCT USED FOR UNKNOWN INDICATION
  3. CETRIZINE [Concomitant]
     Indication: PRODUCT USED FOR UNKNOWN INDICATION
  4. CORTICOSTEROIDS [Concomitant]
     Indication: PRODUCT USED FOR UNKNOWN INDICATION
  5. SUCRALFATE [Concomitant]
     Indication: PRODUCT USED FOR UNKNOWN INDICATION
  6. VITAMIN B12 [Concomitant]
     Indication: PRODUCT USED FOR UNKNOWN INDICATION

REACTIONS (34)
  - Anaemia [Unknown]
  - Breast enlargement [Unknown]
  - Dyspnoea [Unknown]
  - Cellulitis [Unknown]
  - Confusional state [Unknown]
  - Depression [Unknown]
  - Eye haemorrhage [Unknown]
  - Fall [Unknown]
  - Pain [Not Recovered/Not Resolved]
  - Headache [Unknown]
  - Intestinal haemorrhage [Unknown]
  - Mouth haemorrhage [Unknown]
  - Muscular weakness [Unknown]
  - Gastrooesophageal reflux disease [Recovering/Resolving]
  - Osteopenia [Unknown]
  - Erythema [Unknown]
  - Skin burning sensation [Unknown]
  - Oedema peripheral [Recovering/Resolving]
  - Tremor [Unknown]
  - Angiopathy [Unknown]
  - Visual impairment [Unknown]
  - Photopsia [Unknown]
  - Vitamin D deficiency [Unknown]
  - Vitreous detachment [Unknown]
  - Weight decreased [Unknown]
  - Angioedema [Unknown]
  - Blood pressure decreased [Unknown]
  - Body height decreased [Unknown]
  - Breast discolouration [Not Recovered/Not Resolved]
  - Photophobia [Unknown]
  - Arthralgia [Not Recovered/Not Resolved]
  - Drug ineffective [Unknown]
  - Sjogren^s syndrome [Recovering/Resolving]
  - Glossodynia [Unknown]
